FAERS Safety Report 20791670 (Version 1)
Quarter: 2022Q2

REPORT INFORMATION
  Report Type: Spontaneous
  Country: ES (occurrence: ES)
  Receive Date: 20220505
  Receipt Date: 20220505
  Transmission Date: 20220720
  Serious: Yes (Life-Threatening, Hospitalization)
  Sender: FDA-Public Use
  Company Number: None

PATIENT
  Age: 65 Year
  Sex: Female

DRUGS (8)
  1. ENTRESTO [Suspect]
     Active Substance: SACUBITRIL\VALSARTAN
     Indication: Cardiomyopathy acute
     Dosage: UNK (1.0 COMP C/12 H)
     Route: 048
     Dates: start: 20211229
  2. EPLERENONE [Suspect]
     Active Substance: EPLERENONE
     Indication: Cardiomyopathy acute
     Dosage: 25 MG DE
     Route: 048
     Dates: start: 20220318
  3. BISOPROLOL [Concomitant]
     Active Substance: BISOPROLOL
     Indication: Cardiomyopathy acute
     Dosage: 5 MG DE
     Route: 048
     Dates: start: 20211111
  4. ESOMEPRAZOLE [Concomitant]
     Active Substance: ESOMEPRAZOLE
     Indication: Dyspepsia
     Dosage: 20 MG DECE
     Route: 048
     Dates: start: 20201111
  5. CHOLECALCIFEROL [Concomitant]
     Active Substance: CHOLECALCIFEROL
     Indication: Vitamin D decreased
     Dosage: 25000.0 UI C/30 DIAS
     Route: 048
     Dates: start: 20190616
  6. ASPIRIN [Concomitant]
     Active Substance: ASPIRIN
     Indication: Cerebral ischaemia
     Dosage: 100 MG CO
     Route: 048
     Dates: start: 20210916
  7. EFENSOL [Concomitant]
     Indication: Gastroenteritis
     Dosage: 3 G A-DECOCE
     Route: 048
     Dates: start: 20210531
  8. ATORVASTATIN CALCIUM [Concomitant]
     Active Substance: ATORVASTATIN CALCIUM
     Indication: Hyperlipidaemia
     Dosage: 20 MG CE
     Route: 048
     Dates: start: 20180802

REACTIONS (3)
  - Diarrhoea [Recovering/Resolving]
  - Acute kidney injury [Recovering/Resolving]
  - Vomiting [Recovering/Resolving]

NARRATIVE: CASE EVENT DATE: 20220416
